FAERS Safety Report 6754911-2 (Version None)
Quarter: 2010Q2

REPORT INFORMATION
  Report Type: 
  Country: None (occurrence: None)
  Receive Date: 20100603
  Receipt Date: 20100525
  Transmission Date: 20101027
  Serious: Yes (Other)
  Sender: FDA-Public Use
  Company Number: US-AMGEN-QUU414185

PATIENT
  Sex: Male

DRUGS (16)
  1. EPOGEN [Suspect]
     Indication: RENAL FAILURE CHRONIC
  2. VITAMIN C [Concomitant]
  3. NEXIUM [Concomitant]
  4. NOVALOG INSULIN [Concomitant]
  5. PHENERGAN [Concomitant]
  6. XANAX [Concomitant]
  7. AMBIEN [Concomitant]
  8. BENADRYL [Concomitant]
  9. OXYCODONE [Concomitant]
  10. PROVIGIL [Concomitant]
  11. REGLAN [Concomitant]
  12. LISINOPRIL [Concomitant]
  13. LANTUS [Concomitant]
  14. CELEXA [Concomitant]
  15. COREG [Concomitant]
  16. ASPIRIN [Concomitant]

REACTIONS (2)
  - HAEMOGLOBIN DECREASED [None]
  - SERUM FERRITIN INCREASED [None]
